FAERS Safety Report 5324591-1 (Version None)
Quarter: 2007Q2

REPORT INFORMATION
  Report Type: 
  Country: None (occurrence: None)
  Receive Date: 20070509
  Receipt Date: 20070423
  Transmission Date: 20071010
  Serious: Yes (Life-Threatening, Hospitalization)
  Sender: FDA-Public Use
  Company Number: DSA_29831_2007

PATIENT
  Age: 72 Year
  Sex: Male

DRUGS (6)
  1. ENALAPRIL MALEATE (ENALAPRIL MALEATE) 5 MG [Suspect]
     Indication: ESSENTIAL HYPERTENSION
     Dosage: (20 MG BID ORAL)
     Route: 048
     Dates: end: 20060827
  2. SPIRONOLACTONE [Suspect]
     Indication: ESSENTIAL HYPERTENSION
     Dosage: (100 MG QD ORAL)
     Route: 048
     Dates: start: 20060704, end: 20060827
  3. VERAPAMIL HCL (VERAPAMIL HCL) 240 MG [Suspect]
     Indication: CARDIOMYOPATHY
     Dosage: (240 MG QD ORAL)
     Route: 048
     Dates: end: 20060827
  4. FUROSEMIDE (FUROSEMIDE) 40 MG [Suspect]
     Indication: ESSENTIAL HYPERTENSION
     Dosage: (40 MG QD ORAL)
     Route: 048
     Dates: end: 20060827
  5. ALLOPURINOL [Concomitant]
  6. ATORVASTATIN SODIUM [Concomitant]

REACTIONS (5)
  - ATRIOVENTRICULAR BLOCK COMPLETE [None]
  - DRUG INTERACTION [None]
  - HAEMODIALYSIS [None]
  - HYPERKALAEMIA [None]
  - RENAL FAILURE ACUTE [None]
